FAERS Safety Report 5371973-8 (Version None)
Quarter: 2007Q2

REPORT INFORMATION
  Report Type: 
  Country: None (occurrence: None)
  Receive Date: 20070627
  Receipt Date: 20070625
  Transmission Date: 20071010
  Serious: Yes (Hospitalization)
  Sender: FDA-Public Use
  Company Number: FR-ASTRAZENECA-2007CG00966

PATIENT
  Age: 26492 Day
  Sex: Male
  Weight: 91 kg

DRUGS (8)
  1. TENORMIN [Suspect]
     Indication: HYPERTENSION
     Route: 048
     Dates: start: 20030701, end: 20070501
  2. TENORMIN [Suspect]
     Route: 048
     Dates: start: 20070501, end: 20070501
  3. TENORMIN [Suspect]
     Route: 048
     Dates: start: 20070501, end: 20070521
  4. OMEPRAZOLE [Concomitant]
     Route: 048
  5. TRIATEC [Concomitant]
     Route: 048
  6. ASPIRIN [Concomitant]
  7. PRAVASTATIN [Concomitant]
  8. XATRAL [Concomitant]

REACTIONS (2)
  - BRADYCARDIA [None]
  - MALAISE [None]
